FAERS Safety Report 9718548 (Version 1)
Quarter: 2013Q4

REPORT INFORMATION
  Report Type: Not Available
  Country: US (occurrence: US)
  Receive Date: 20131125
  Receipt Date: 20131125
  Transmission Date: 20140711
  Serious: No
  Sender: FDA-Public Use
  Company Number: US-VIVUS-2013V1000783

PATIENT
  Age: 45 Year
  Sex: Female
  Weight: 86.26 kg

DRUGS (13)
  1. QSYMIA 3.75MG/23MG [Suspect]
     Indication: WEIGHT DECREASED
     Route: 048
     Dates: start: 20131014
  2. SYNTHROID [Concomitant]
     Indication: HYPOTHYROIDISM
     Route: 048
  3. CYTOMEL [Concomitant]
     Indication: HYPOTHYROIDISM
     Route: 048
  4. CLARITIN-D [Concomitant]
     Indication: HYPERSENSITIVITY
     Route: 048
  5. CELEXA [Concomitant]
     Indication: ANXIETY
     Dosage: 10-20 MG
     Route: 048
  6. SEVEN KETO [Concomitant]
     Indication: VITAMIN SUPPLEMENTATION
     Route: 048
  7. GYMNEMA GOLD [Concomitant]
     Indication: VITAMIN SUPPLEMENTATION
     Route: 048
  8. TUMERIC CURCIM [Concomitant]
     Indication: VITAMIN SUPPLEMENTATION
     Route: 048
  9. MAGNESIUM [Concomitant]
     Indication: VITAMIN SUPPLEMENTATION
     Route: 048
  10. VITAMIN D3 [Concomitant]
     Indication: VITAMIN SUPPLEMENTATION
     Route: 048
  11. VITAMIN C [Concomitant]
     Indication: VITAMIN SUPPLEMENTATION
     Route: 048
  12. BIOTEN [Concomitant]
     Indication: SUPPLEMENTATION THERAPY
     Route: 048
  13. VITAMIN B12 [Concomitant]
     Indication: VITAMIN SUPPLEMENTATION
     Route: 048

REACTIONS (3)
  - Breast pain [Not Recovered/Not Resolved]
  - Depression [Recovering/Resolving]
  - Mental impairment [Not Recovered/Not Resolved]
